FAERS Safety Report 4690999-0 (Version None)
Quarter: 2005Q2

REPORT INFORMATION
  Report Type: 
  Country: None (occurrence: None)
  Receive Date: 20050615
  Receipt Date: 20050603
  Transmission Date: 20051028
  Serious: Yes (Other)
  Sender: FDA-Public Use
  Company Number: US-BRISTOL-MYERS SQUIBB COMPANY-12994976

PATIENT
  Age: 44 Year
  Sex: Female
  Weight: 57 kg

DRUGS (8)
  1. ZERIT [Suspect]
     Dates: end: 20050523
  2. ABACAVIR [Concomitant]
     Dosage: STOPPED ON 27-MAY-2005 AND RESTARTED ON 03-JUN-2005.
  3. TENOFOVIR [Concomitant]
     Dosage: STOPPED ON 27-MAY-2005 AND RESTARTED ON 03-JUN-2005.
  4. KALETRA [Concomitant]
     Dosage: STOPPED ON 27-MAY-2005 AND RESTARTED ON 03-JUN-2005.
  5. SYNTHROID [Concomitant]
  6. ZOLOFT [Concomitant]
  7. TUMS [Concomitant]
  8. ASPIRIN [Concomitant]

REACTIONS (1)
  - GUILLAIN-BARRE SYNDROME [None]
